FAERS Safety Report 20652616 (Version 1)
Quarter: 2022Q1

REPORT INFORMATION
  Report Type: Spontaneous
  Country: KR (occurrence: KR)
  Receive Date: 20220330
  Receipt Date: 20220330
  Transmission Date: 20220423
  Serious: Yes (Hospitalization)
  Sender: FDA-Public Use
  Company Number: KR-ELI_LILLY_AND_COMPANY-KR202203010720

PATIENT
  Age: 80 Year

DRUGS (1)
  1. TERIPARATIDE [Suspect]
     Active Substance: TERIPARATIDE
     Indication: Lower limb fracture
     Dosage: 20 UG, DAILY
     Route: 058
     Dates: start: 20220320, end: 20220322

REACTIONS (5)
  - Hypokinesia [Unknown]
  - Headache [Unknown]
  - Vomiting [Unknown]
  - Hypophagia [Unknown]
  - Off label use [Unknown]

NARRATIVE: CASE EVENT DATE: 20220320
